FAERS Safety Report 17145065 (Version 1)
Quarter: 2019Q4

REPORT INFORMATION
  Report Type: Spontaneous
  Country: TR (occurrence: TR)
  Receive Date: 20191212
  Receipt Date: 20191212
  Transmission Date: 20200122
  Serious: Yes (Other)
  Sender: FDA-Public Use
  Company Number: TR-SA-2019SA339306

PATIENT
  Age: 69 Year
  Sex: Male

DRUGS (1)
  1. TAMPROST [Suspect]
     Active Substance: TAMSULOSIN HYDROCHLORIDE
     Dosage: UNK UNK, UNK
     Route: 065
     Dates: start: 201907, end: 201908

REACTIONS (6)
  - Penile rash [Unknown]
  - Onychomadesis [Unknown]
  - Asthenia [Unknown]
  - Rash [Unknown]
  - Acne [Unknown]
  - Weight decreased [Unknown]

NARRATIVE: CASE EVENT DATE: 201907
